FAERS Safety Report 9754426 (Version 2)
Quarter: 2014Q2

REPORT INFORMATION
  Report Type: Spontaneous
  Country: US (occurrence: US)
  Receive Date: 20131213
  Receipt Date: 20140618
  Transmission Date: 20141212
  Serious: Yes (Other)
  Sender: FDA-Public Use
  Company Number: US-BAYER-2013-152394

PATIENT
  Age: 24 Year
  Sex: Female
  Weight: 60.32 kg

DRUGS (1)
  1. MIRENA [Suspect]
     Indication: CONTRACEPTION
     Dosage: 20 MCG/24HR, CONT
     Route: 015
     Dates: start: 20130418, end: 20131204

REACTIONS (6)
  - Uterine perforation [Recovered/Resolved]
  - Genital haemorrhage [Recovered/Resolved]
  - Pain [Recovered/Resolved]
  - Device damage [None]
  - Device dislocation [Recovered/Resolved]
  - Device difficult to use [None]
